FAERS Safety Report 5356183-2 (Version None)
Quarter: 2007Q2

REPORT INFORMATION
  Report Type: 
  Country: None (occurrence: None)
  Receive Date: 20070613
  Receipt Date: 20070607
  Transmission Date: 20071010
  Serious: Yes (Life-Threatening, Hospitalization)
  Sender: FDA-Public Use
  Company Number: FR-GENENTECH-241735

PATIENT
  Sex: Female

DRUGS (6)
  1. XOLAIR [Suspect]
     Indication: ASTHMA
     Dosage: 300 MG, SINGLE
     Route: 058
     Dates: start: 20070510, end: 20070510
  2. SEREVENT [Suspect]
     Indication: ASTHMA
  3. BAMBUTEROL [Suspect]
     Indication: DRUG USE FOR UNKNOWN INDICATION
     Route: 048
  4. SINGULAIR [Suspect]
     Indication: DRUG USE FOR UNKNOWN INDICATION
     Route: 048
  5. BRONCHODUAL [Concomitant]
     Indication: DRUG USE FOR UNKNOWN INDICATION
  6. IMMUNE GLOBULIN INTRAVENOUS (HUMAN) [Concomitant]
     Indication: DRUG USE FOR UNKNOWN INDICATION
     Dosage: 500 IU/ML, UNK
     Dates: start: 20070510

REACTIONS (5)
  - BRONCHOSPASM [None]
  - CHEST DISCOMFORT [None]
  - LARYNGEAL OEDEMA [None]
  - STATUS ASTHMATICUS [None]
  - SWELLING FACE [None]
